FAERS Safety Report 11481766 (Version 2)
Quarter: 2015Q4

REPORT INFORMATION
  Report Type: Spontaneous
  Country: PE (occurrence: PE)
  Receive Date: 20150909
  Receipt Date: 20151102
  Transmission Date: 20160304
  Serious: Yes (Other)
  Sender: FDA-Public Use
  Company Number: PE-PFIZER INC-2015292896

PATIENT
  Age: 66 Year
  Sex: Female

DRUGS (2)
  1. PRISTIQ EXTENDED RELEASE [Suspect]
     Active Substance: DESVENLAFAXINE SUCCINATE
     Dosage: 1 DF, DAILY IN THE MORNING
     Route: 048
  2. SERENEX [Concomitant]
     Dosage: UNK, 1X/DAY (IN THE NIGHT)

REACTIONS (12)
  - Wrist fracture [Unknown]
  - Impatience [Unknown]
  - Infarction [Unknown]
  - Knee operation [Not Recovered/Not Resolved]
  - Sleep disorder [Unknown]
  - Drug ineffective [Unknown]
  - Listless [Not Recovered/Not Resolved]
  - Fall [Unknown]
  - General physical health deterioration [Not Recovered/Not Resolved]
  - Insomnia [Unknown]
  - Mood altered [Not Recovered/Not Resolved]
  - Bone fissure [Unknown]

NARRATIVE: CASE EVENT DATE: 2011
